FAERS Safety Report 8863002 (Version 1)
Quarter: 2012Q4

REPORT INFORMATION
  Report Type: 
  Country: US (occurrence: US)
  Receive Date: 20121026
  Receipt Date: 20121026
  Transmission Date: 20130627
  Serious: No
  Sender: FDA-Public Use
  Company Number: US-ALLERGAN-1116922US

PATIENT
  Sex: Female

DRUGS (4)
  1. ALPHAGAN [Suspect]
     Indication: GLAUCOMA
     Dosage: UNK
     Route: 047
  2. AZOPT [Concomitant]
     Dosage: 1 Gtt, bid
  3. XALATAN [Concomitant]
     Indication: DRUG USE FOR UNKNOWN INDICATION
  4. ISTALOL [Concomitant]
     Indication: DRUG USE FOR UNKNOWN INDICATION

REACTIONS (1)
  - Alopecia [Not Recovered/Not Resolved]
